FAERS Safety Report 6199723-6 (Version None)
Quarter: 2009Q2

REPORT INFORMATION
  Report Type: 
  Country: None (occurrence: None)
  Receive Date: 20090522
  Receipt Date: 20071217
  Transmission Date: 20091009
  Serious: Yes (Hospitalization, Other)
  Sender: FDA-Public Use
  Company Number: US-ALEXION-A200700124

PATIENT
  Sex: Female

DRUGS (13)
  1. SOLIRIS [Suspect]
     Indication: PAROXYSMAL NOCTURNAL HAEMOGLOBINURIA
     Dosage: 600 MG, SINGLE (INFUSION #1)
     Route: 042
     Dates: start: 20070503, end: 20070503
  2. SOLIRIS [Suspect]
     Dosage: INFUSIONS 2 THROUGH 14 (UNKNOWN DOSES)
     Route: 042
     Dates: start: 20070101, end: 20070101
  3. SOLIRIS [Suspect]
     Dosage: 900 MG, SINGLE (INFUSION #15)
     Route: 042
     Dates: start: 20071018, end: 20071018
  4. COUMADIN [Concomitant]
     Dosage: 1.5 MG, 1 DAY PER WEEK
     Route: 048
  5. COUMADIN [Concomitant]
     Dosage: 2.5 MG, 6 DAYS PER WEEK
     Route: 048
  6. SINGULAIR [Concomitant]
  7. ALBUTEROL [Concomitant]
  8. TOPROL-XL [Concomitant]
     Dosage: 25 MG, QD
     Route: 048
  9. LASIX [Concomitant]
     Indication: DYSPNOEA
     Dosage: 40 MG, PRN
     Route: 048
  10. FOLIC ACID [Concomitant]
     Indication: PAROXYSMAL NOCTURNAL HAEMOGLOBINURIA
     Dosage: UNK, QD
     Route: 048
  11. OXYGEN [Concomitant]
     Dosage: 2 L, HS
     Route: 045
  12. POTASSIUM CHLORIDE [Concomitant]
     Dosage: 40 MEQ, QD
     Route: 048
  13. DIATEX [Concomitant]
     Dosage: .25 MG, QD
     Route: 048

REACTIONS (3)
  - HEART VALVE REPLACEMENT [None]
  - HEPATIC FAILURE [None]
  - SEPSIS [None]
